FAERS Safety Report 6710413-0 (Version None)
Quarter: 2010Q2

REPORT INFORMATION
  Report Type: 
  Country: None (occurrence: None)
  Receive Date: 20100504
  Receipt Date: 20100429
  Transmission Date: 20101027
  Serious: Yes (Other)
  Sender: FDA-Public Use
  Company Number: US-CEPHALON-2010002179

PATIENT
  Sex: Male
  Weight: 126 kg

DRUGS (3)
  1. NUVIGIL [Suspect]
     Indication: SOMNOLENCE
     Route: 048
  2. SUBOXONE [Concomitant]
  3. CYMBALTA [Concomitant]

REACTIONS (1)
  - STEVENS-JOHNSON SYNDROME [None]
